FAERS Safety Report 22287861 (Version 1)
Quarter: 2023Q2

REPORT INFORMATION
  Report Type: Spontaneous
  Country: CA (occurrence: CA)
  Receive Date: 20230505
  Receipt Date: 20230505
  Transmission Date: 20230721
  Serious: Yes (Hospitalization)
  Sender: FDA-Public Use
  Company Number: None

PATIENT
  Age: 59 Year
  Sex: Male

DRUGS (14)
  1. METHOTREXATE SODIUM [Suspect]
     Active Substance: METHOTREXATE SODIUM
     Indication: Prophylaxis
     Route: 037
  2. CYCLOPHOSPHAMIDE [Suspect]
     Active Substance: CYCLOPHOSPHAMIDE
     Indication: Plasmablastic lymphoma
  3. VINCRISTINE SULFATE [Suspect]
     Active Substance: VINCRISTINE SULFATE
     Indication: Plasmablastic lymphoma
     Route: 042
  4. AZATHIOPRINE [Suspect]
     Active Substance: AZATHIOPRINE
     Indication: Sinus pain
  5. ETOPOSIDE [Suspect]
     Active Substance: ETOPOSIDE
     Indication: Plasmablastic lymphoma
     Route: 042
  6. RITUXIMAB [Suspect]
     Active Substance: RITUXIMAB
     Indication: Prophylaxis
  7. PREDNISOLONE [Suspect]
     Active Substance: PREDNISOLONE
     Indication: Plasmablastic lymphoma
  8. METHOTREXATE SODIUM [Suspect]
     Active Substance: METHOTREXATE SODIUM
     Indication: Prophylaxis
  9. METHOTREXATE SODIUM [Suspect]
     Active Substance: METHOTREXATE SODIUM
     Indication: Prophylaxis
  10. CYCLOPHOSPHAMIDE [Suspect]
     Active Substance: CYCLOPHOSPHAMIDE
     Indication: Plasmablastic lymphoma
     Route: 042
  11. ETOPOSIDE [Suspect]
     Active Substance: ETOPOSIDE
     Indication: Plasmablastic lymphoma
     Route: 048
  12. PREDNISOLONE [Suspect]
     Active Substance: PREDNISOLONE
     Indication: Plasmablastic lymphoma
     Route: 048
  13. PREDNISOLONE [Suspect]
     Active Substance: PREDNISOLONE
     Indication: Plasmablastic lymphoma
     Route: 048
  14. VINCRISTINE SULFATE [Suspect]
     Active Substance: VINCRISTINE SULFATE
     Indication: Plasmablastic lymphoma

REACTIONS (5)
  - Bacteraemia [Recovered/Resolved]
  - Drug ineffective [Recovered/Resolved]
  - Epstein-Barr virus infection [Recovered/Resolved]
  - Pseudomonas aeruginosa meningitis [Recovered/Resolved]
  - Staphylococcal bacteraemia [Recovered/Resolved]
